FAERS Safety Report 6722549-9 (Version None)
Quarter: 2010Q2

REPORT INFORMATION
  Report Type: 
  Country: None (occurrence: None)
  Receive Date: 20100506
  Receipt Date: 20100224
  Transmission Date: 20101027
  Serious: Yes (Other)
  Sender: FDA-Public Use
  Company Number: WAES 1002USA03786

PATIENT
  Age: 52 Year
  Sex: Female

DRUGS (4)
  1. JANUMET [Suspect]
     Indication: BLOOD GLUCOSE
     Dosage: 500MG/50MG/BID/PO
     Route: 048
     Dates: start: 20091201
  2. INSULIN [Concomitant]
  3. METOPROLOL TARTRATE [Concomitant]
  4. SIMVASTATIN [Concomitant]

REACTIONS (1)
  - PANCREATITIS [None]
